FAERS Safety Report 18717206 (Version 1)
Quarter: 2021Q1

REPORT INFORMATION
  Report Type: Spontaneous
  Country: US (occurrence: US)
  Receive Date: 20210108
  Receipt Date: 20210108
  Transmission Date: 20210419
  Serious: No
  Sender: FDA-Public Use
  Company Number: None

PATIENT
  Age: 46 Year
  Sex: Female

DRUGS (4)
  1. MENOPUR [Suspect]
     Active Substance: FOLLITROPIN\LUTEINIZING HORMONE
     Indication: BREAST CANCER FEMALE
     Route: 058
     Dates: start: 20200121
  2. ISIBLOOM; LETROZOLE [Concomitant]
  3. TAMOXIFEN; VITAMIN D [Concomitant]
  4. GANIRELIX; FOLLISTIM AQ [Concomitant]

REACTIONS (1)
  - Diarrhoea [None]

NARRATIVE: CASE EVENT DATE: 20201228
